FAERS Safety Report 5633489-0 (Version None)
Quarter: 2008Q1

REPORT INFORMATION
  Report Type: 
  Country: None (occurrence: None)
  Receive Date: 20080219
  Receipt Date: 20080205
  Transmission Date: 20080703
  Serious: Yes (Other)
  Sender: FDA-Public Use
  Company Number: SPV1-2008-00245

PATIENT
  Age: 6 Year
  Sex: Male
  Weight: 32.2 kg

DRUGS (1)
  1. VYVANSE [Suspect]
     Indication: ATTENTION DEFICIT/HYPERACTIVITY DISORDER
     Dosage: 30 MG, ONE DOSE, ORAL
     Route: 048
     Dates: start: 20080203, end: 20080203

REACTIONS (3)
  - HYPOKINESIA [None]
  - PRURITUS GENERALISED [None]
  - URINARY INCONTINENCE [None]
